FAERS Safety Report 5267780-7 (Version None)
Quarter: 2007Q1

REPORT INFORMATION
  Report Type: 
  Country: None (occurrence: None)
  Receive Date: 20070316
  Receipt Date: 20070305
  Transmission Date: 20070707
  Serious: Yes (Other)
  Sender: FDA-Public Use
  Company Number: US-PFIZER INC-2007017603

PATIENT
  Sex: Female
  Weight: 88 kg

DRUGS (6)
  1. CHANTIX [Suspect]
     Indication: SMOKING CESSATION THERAPY
     Route: 048
  2. GEODON [Concomitant]
  3. LEXAPRO [Concomitant]
  4. ZOLPIDEM TARTRATE [Concomitant]
  5. DIAZEPAM [Concomitant]
  6. SIMVASTATIN [Concomitant]

REACTIONS (2)
  - BRONCHITIS [None]
  - PNEUMONIA [None]
